FAERS Safety Report 17657399 (Version 1)
Quarter: 2020Q2

REPORT INFORMATION
  Report Type: Spontaneous
  Country: US (occurrence: US)
  Receive Date: 20200410
  Receipt Date: 20200410
  Transmission Date: 20200713
  Serious: No
  Sender: FDA-Public Use
  Company Number: US-BRISTOL-MYERS SQUIBB COMPANY-BMS-2020-030050

PATIENT
  Sex: Male
  Weight: 63.5 kg

DRUGS (1)
  1. ELIQUIS [Suspect]
     Active Substance: APIXABAN
     Indication: ATHEROEMBOLISM
     Dosage: 5 MILLIGRAM, BID
     Route: 048
     Dates: start: 202001

REACTIONS (3)
  - Product packaging issue [Unknown]
  - Product dose omission [Unknown]
  - Intentional product use issue [Unknown]
